FAERS Safety Report 4446402-9 (Version None)
Quarter: 2004Q3

REPORT INFORMATION
  Report Type: 
  Country: None (occurrence: None)
  Receive Date: 20040907
  Receipt Date: 20040823
  Transmission Date: 20050211
  Serious: Yes (Hospitalization)
  Sender: FDA-Public Use
  Company Number: 04P-163-0271232-00

PATIENT
  Age: 56 Year
  Sex: Male
  Weight: 92.9874 kg

DRUGS (10)
  1. TRICOR [Suspect]
     Indication: BLOOD TRIGLYCERIDES INCREASED
     Dosage: 160 MG, 1 IN 1 D, PER ORAL
     Route: 048
     Dates: start: 20031001, end: 20040101
  2. ASPIRIN [Concomitant]
  3. FOLIC ACID [Concomitant]
  4. AMLODIPINE BESYLATE [Concomitant]
  5. PANTOPRAZOLE [Concomitant]
  6. CELECOXIB [Concomitant]
  7. MOMETASONE FUROATE [Concomitant]
  8. CLONAZEPAM [Concomitant]
  9. ZOLPIDEM TARTRATE [Concomitant]
  10. TRAZODONE HCL [Concomitant]

REACTIONS (10)
  - APHAGIA [None]
  - ARTHRALGIA [None]
  - BLOOD CREATINE PHOSPHOKINASE INCREASED [None]
  - CHROMATURIA [None]
  - GASTROINTESTINAL DISORDER [None]
  - INFLAMMATION [None]
  - MYALGIA [None]
  - NIGHT SWEATS [None]
  - RENAL PAIN [None]
  - URINE ODOUR ABNORMAL [None]
